FAERS Safety Report 8997241 (Version 3)
Quarter: 2013Q1

REPORT INFORMATION
  Report Type: Spontaneous
  Country: CA (occurrence: CA)
  Receive Date: 20130104
  Receipt Date: 20130111
  Transmission Date: 20140127
  Serious: Yes (Other)
  Sender: FDA-Public Use
  Company Number: CA-PFIZER INC-2012188290

PATIENT
  Age: 33 Year
  Sex: Male
  Weight: 63.49 kg

DRUGS (5)
  1. ADVIL COLD AND SINUS [Suspect]
     Indication: PAIN
     Dosage: UNK
  2. ADVIL COLD AND SINUS [Suspect]
     Indication: HEADACHE
     Dosage: ONLY WHEN NEEDED (ONLY A COUPLE OF DOSES)
  3. TYLENOL [Suspect]
     Indication: PAIN
     Dosage: UNK
  4. ALEVE [Suspect]
     Dosage: UNK
  5. INSULIN [Concomitant]
     Dosage: UNK

REACTIONS (10)
  - Hypersensitivity [Recovered/Resolved]
  - Eye swelling [Recovered/Resolved]
  - Dyspnoea [Recovered/Resolved]
  - Urticaria [Recovered/Resolved]
  - Local swelling [Unknown]
  - Pruritus [Recovered/Resolved]
  - Swelling [Recovered/Resolved]
  - Erythema [Recovered/Resolved]
  - Paraesthesia oral [Recovered/Resolved]
  - Drug intolerance [Unknown]
